FAERS Safety Report 19754375 (Version 1)
Quarter: 2021Q3

REPORT INFORMATION
  Report Type: Spontaneous
  Country: US (occurrence: US)
  Receive Date: 20210826
  Receipt Date: 20210826
  Transmission Date: 20211014
  Serious: Yes (Life-Threatening, Disabling, Congenital Anomaly, Other)
  Sender: FDA-Public Use
  Company Number: None

PATIENT
  Age: 65 Year
  Weight: 56.7 kg

DRUGS (1)
  1. AMNEAL MFG INDIA OFLOXACIN .3 [Suspect]
     Active Substance: OFLOXACIN

REACTIONS (3)
  - Ear swelling [None]
  - Feeling hot [None]
  - Ear pruritus [None]

NARRATIVE: CASE EVENT DATE: 20210727
